FAERS Safety Report 15408024 (Version 1)
Quarter: 2018Q3

REPORT INFORMATION
  Report Type: Spontaneous
  Country: SE (occurrence: SE)
  Receive Date: 20180920
  Receipt Date: 20180920
  Transmission Date: 20181010
  Serious: Yes (Hospitalization, Disabling)
  Sender: FDA-Public Use
  Company Number: SE-JNJFOC-20180910935

PATIENT
  Age: 69 Year
  Sex: Male

DRUGS (7)
  1. XARELTO [Suspect]
     Active Substance: RIVAROXABAN
     Indication: DEEP VEIN THROMBOSIS
     Route: 048
     Dates: start: 201607, end: 20160927
  2. TROMBYL [Concomitant]
     Active Substance: ASPIRIN
     Route: 065
  3. ALVEDON [Concomitant]
     Active Substance: ACETAMINOPHEN
     Route: 065
  4. AMLODIPINE [Concomitant]
     Active Substance: AMLODIPINE BESYLATE
     Route: 065
  5. FURIX [Concomitant]
     Active Substance: FUROSEMIDE
     Route: 065
  6. METOPROLOL. [Concomitant]
     Active Substance: METOPROLOL
     Route: 065
  7. BEHEPAN [Concomitant]
     Active Substance: HYDROXOCOBALAMIN
     Route: 065

REACTIONS (2)
  - Compartment syndrome [Recovered/Resolved with Sequelae]
  - Soft tissue haemorrhage [Recovered/Resolved with Sequelae]

NARRATIVE: CASE EVENT DATE: 20160927
